FAERS Safety Report 8811721 (Version 1)
Quarter: 2012Q4

REPORT INFORMATION
  Report Type: 
  Country: PE (occurrence: PE)
  Receive Date: 20120927
  Receipt Date: 20120927
  Transmission Date: 20130627
  Serious: Yes (Hospitalization)
  Sender: FDA-Public Use
  Company Number: PHHO2004PE17706

PATIENT
  Age: 42 Year
  Sex: Male
  Weight: 79 kg

DRUGS (4)
  1. ALISKIREN [Suspect]
     Indication: ESSENTIAL HYPERTENSION
     Dosage: 150 mg, daily
     Route: 048
     Dates: start: 20040928, end: 20041213
  2. VALDECOXIB [Concomitant]
     Indication: HAEMORRHOID OPERATION
     Dosage: 40 mg, daily
     Route: 048
     Dates: start: 20041206, end: 20041212
  3. ACETAMINOPHEN [Concomitant]
     Indication: HAEMORRHOID OPERATION
     Dosage: 500 mg, daily
     Dates: start: 20041209, end: 20041210
  4. CLINDAMYCIN [Concomitant]
     Indication: HAEMORRHOID OPERATION
     Dosage: 1200 mg, daily
     Route: 048
     Dates: start: 20041206, end: 20041210

REACTIONS (7)
  - Cerebrovascular accident [Recovering/Resolving]
  - Hemiparesis [Recovering/Resolving]
  - Cerebral infarction [Recovering/Resolving]
  - Disease progression [Recovering/Resolving]
  - Proctalgia [Unknown]
  - Headache [Unknown]
  - Asthenia [Unknown]
